FAERS Safety Report 4829230-1 (Version None)
Quarter: 2005Q4

REPORT INFORMATION
  Report Type: 
  Country: None (occurrence: None)
  Receive Date: 20051028
  Receipt Date: 20050916
  Transmission Date: 20060501
  Serious: No
  Sender: FDA-Public Use
  Company Number: COT_0217_2005

PATIENT
  Age: 62 Year
  Sex: Female
  Weight: 97 kg

DRUGS (21)
  1. VENTAVIS [Suspect]
     Indication: PULMONARY HYPERTENSION
     Dosage: 2.5 MCG VARIABLE IH
     Route: 055
     Dates: start: 20050802, end: 20050902
  2. VENTAVIS [Suspect]
     Indication: PULMONARY HYPERTENSION
     Dosage: 5 MCG 7XD IH
     Route: 055
     Dates: start: 20050902, end: 20050915
  3. VENTAVIS [Suspect]
     Indication: PULMONARY HYPERTENSION
     Dosage: 2.5 MCG VARIABLE IH
     Route: 055
     Dates: start: 20050915
  4. GLUCOPHAGE [Concomitant]
  5. COUMADIN [Concomitant]
  6. ALDACTONE [Concomitant]
  7. VITAMIN B-12 [Concomitant]
  8. ACTOS [Concomitant]
  9. PREMARIN [Concomitant]
  10. WELLBUTRIN SR [Concomitant]
  11. CARDIZEM [Concomitant]
  12. SINGULAIR [Concomitant]
  13. LIPITOR [Concomitant]
  14. MIRAPEX [Concomitant]
  15. ZETIA [Concomitant]
  16. MAGNESIUM [Concomitant]
  17. CLARINEX [Concomitant]
  18. KLONOPIN [Concomitant]
  19. ADVAIR DISKUS 100/50 [Concomitant]
  20. DEMADEX [Concomitant]
  21. K-TAB [Concomitant]

REACTIONS (5)
  - ALOPECIA [None]
  - CHEST PAIN [None]
  - COUGH [None]
  - DYSPNOEA [None]
  - OXYGEN SATURATION DECREASED [None]
